FAERS Safety Report 5684079-5 (Version None)
Quarter: 2008Q1

REPORT INFORMATION
  Report Type: 
  Country: None (occurrence: None)
  Receive Date: 20080328
  Receipt Date: 20080328
  Transmission Date: 20080703
  Serious: Yes (Life-Threatening, Hospitalization)
  Sender: FDA-Public Use
  Company Number: None

PATIENT
  Age: 57 Year
  Sex: Female
  Weight: 68.0396 kg

DRUGS (1)
  1. HEPARIN [Suspect]
     Indication: THROMBOSIS PROPHYLAXIS
     Dosage: 500 UNITS IV BOLUS
     Route: 040
     Dates: start: 20080320, end: 20080320

REACTIONS (7)
  - BLOOD PRESSURE IMMEASURABLE [None]
  - CHEST PAIN [None]
  - DYSPNOEA [None]
  - FLANK PAIN [None]
  - HEART RATE DECREASED [None]
  - OXYGEN SATURATION DECREASED [None]
  - SYNCOPE [None]
